FAERS Safety Report 7413480-4 (Version None)
Quarter: 2011Q2

REPORT INFORMATION
  Report Type: 
  Country: None (occurrence: None)
  Receive Date: 20110413
  Receipt Date: 20110405
  Transmission Date: 20111010
  Serious: Yes (Hospitalization, Other)
  Sender: FDA-Public Use
  Company Number: PHHY2011US11696

PATIENT
  Sex: Female
  Weight: 84 kg

DRUGS (6)
  1. OXYCODONE [Concomitant]
     Route: 048
  2. LOMOTIL [Concomitant]
     Route: 048
  3. AFINITOR [Suspect]
     Indication: RENAL CANCER
     Dosage: 10 MG, QD
     Route: 048
     Dates: start: 20100620
  4. POTASSIUM CHLORIDE [Concomitant]
  5. LACTOBACILLUS [Concomitant]
  6. IMODIUM MULTI-SYMPTOM RELIEF [Concomitant]
     Route: 048

REACTIONS (6)
  - HERNIA [None]
  - NEOPLASM MALIGNANT [None]
  - METASTASES TO BONE [None]
  - DIARRHOEA [None]
  - METASTASES TO LIVER [None]
  - HYPOKALAEMIA [None]
